FAERS Safety Report 5510441-7 (Version None)
Quarter: 2007Q4

REPORT INFORMATION
  Report Type: 
  Country: None (occurrence: None)
  Receive Date: 20071108
  Receipt Date: 20071101
  Transmission Date: 20080405
  Serious: No
  Sender: FDA-Public Use
  Company Number: US-ELI_LILLY_AND_COMPANY-US200711000710

PATIENT
  Sex: Female

DRUGS (3)
  1. CYMBALTA [Suspect]
     Dosage: 120 MG, UNK
     Dates: start: 20070301
  2. CYMBALTA [Suspect]
     Dosage: 60 MG, UNK
  3. LORTAB [Concomitant]
     Indication: PAIN
     Dosage: 2 D/F, DAILY (1/D)

REACTIONS (1)
  - LIVER FUNCTION TEST ABNORMAL [None]
